FAERS Safety Report 10990757 (Version 2)
Quarter: 2015Q3

REPORT INFORMATION
  Report Type: Report from Study
  Country: AU (occurrence: AU)
  Receive Date: 20150406
  Receipt Date: 20150902
  Transmission Date: 20151125
  Serious: Yes (Other)
  Sender: FDA-Public Use
  Company Number: AU-SA-2014SA113606

PATIENT
  Age: 70 Year
  Sex: Female

DRUGS (6)
  1. DIAFORMIN [Concomitant]
     Active Substance: METFORMIN HYDROCHLORIDE
  2. PANADOL [Concomitant]
     Active Substance: ACETAMINOPHEN
  3. ATIVAN [Concomitant]
     Active Substance: LORAZEPAM
  4. AUBAGIO [Suspect]
     Active Substance: TERIFLUNOMIDE
     Indication: MULTIPLE SCLEROSIS
     Route: 048
     Dates: start: 20140620
  5. GABAPENTIN. [Concomitant]
     Active Substance: GABAPENTIN
  6. IMODIUM [Concomitant]
     Active Substance: LOPERAMIDE HYDROCHLORIDE

REACTIONS (14)
  - Pneumonia [Recovering/Resolving]
  - Disorientation [Not Recovered/Not Resolved]
  - Pain [Not Recovered/Not Resolved]
  - Asthenia [Not Recovered/Not Resolved]
  - Weight decreased [Not Recovered/Not Resolved]
  - Unevaluable event [Not Recovered/Not Resolved]
  - Dizziness [Not Recovered/Not Resolved]
  - Gait disturbance [Unknown]
  - Diarrhoea [Unknown]
  - Vertigo [Unknown]
  - Memory impairment [Unknown]
  - Alopecia [Unknown]
  - Balance disorder [Unknown]
  - Fatigue [Not Recovered/Not Resolved]

NARRATIVE: CASE EVENT DATE: 20140620
